FAERS Safety Report 15347238 (Version 6)
Quarter: 2019Q3

REPORT INFORMATION
  Report Type: Spontaneous
  Country: FI (occurrence: FI)
  Receive Date: 20180904
  Receipt Date: 20190910
  Transmission Date: 20191004
  Serious: Yes (Other)
  Sender: FDA-Public Use
  Company Number: FI-MYLANLABS-2018M1064771

PATIENT
  Age: 35 Year
  Sex: Male

DRUGS (12)
  1. CLOZAPINE. [Suspect]
     Active Substance: CLOZAPINE
     Indication: PRODUCT USED FOR UNKNOWN INDICATION
     Dosage: UNK
  2. QUETIAPINE. [Concomitant]
     Active Substance: QUETIAPINE
     Indication: PRODUCT USED FOR UNKNOWN INDICATION
     Dosage: UNK
  3. VENLAFAXINE [Concomitant]
     Active Substance: VENLAFAXINE HYDROCHLORIDE
     Indication: PRODUCT USED FOR UNKNOWN INDICATION
     Dosage: 300 MG, QD
  4. PAROXETINE. [Concomitant]
     Active Substance: PAROXETINE
     Indication: PRODUCT USED FOR UNKNOWN INDICATION
     Dosage: UNK
  5. RISPERIDONE. [Concomitant]
     Active Substance: RISPERIDONE
     Indication: PRODUCT USED FOR UNKNOWN INDICATION
     Dosage: 3 MG, QD
  6. QUETIAPINE. [Concomitant]
     Active Substance: QUETIAPINE
     Dosage: 500 MILLIGRAM, QD
  7. PAROXETINE. [Concomitant]
     Active Substance: PAROXETINE
     Dosage: 30 MILLIGRAM, QD
  8. LAMOTRIGINE. [Concomitant]
     Active Substance: LAMOTRIGINE
     Indication: EPILEPSY
     Dosage: 200 MG, QD
  9. METOPROLOL. [Concomitant]
     Active Substance: METOPROLOL
     Indication: PRODUCT USED FOR UNKNOWN INDICATION
     Dosage: UNK
  10. DISULFIRAM. [Concomitant]
     Active Substance: DISULFIRAM
     Indication: PRODUCT USED FOR UNKNOWN INDICATION
     Dosage: 400 MG, QD
  11. VALPROIC ACID. [Concomitant]
     Active Substance: VALPROIC ACID
     Indication: EPILEPSY
     Dosage: 1000 MG, QD
  12. METOPROLOL. [Concomitant]
     Active Substance: METOPROLOL
     Dosage: 47.5 MILLIGRAM, QD

REACTIONS (1)
  - Seizure [Recovering/Resolving]
